FAERS Safety Report 8190276 (Version 5)
Quarter: 2012Q4

REPORT INFORMATION
  Report Type: 
  Country: BR (occurrence: BR)
  Receive Date: 20111019
  Receipt Date: 20121105
  Transmission Date: 20130627
  Serious: Yes (Hospitalization, Other)
  Sender: FDA-Public Use
  Company Number: BR-ROCHE-1005091

PATIENT
  Age: 49 Year
  Sex: Female

DRUGS (12)
  1. XOLAIR [Suspect]
     Indication: ASTHMA
     Route: 065
     Dates: start: 20090701
  2. XOLAIR [Suspect]
     Route: 065
     Dates: start: 20120424
  3. LOSARTAN [Concomitant]
     Indication: BLOOD PRESSURE
     Route: 065
  4. INSULIN [Concomitant]
     Indication: DIABETES MELLITUS
     Route: 065
  5. DAONIL [Concomitant]
     Indication: DIABETES MELLITUS
  6. SUMAX [Concomitant]
     Indication: MIGRAINE
     Route: 065
  7. DIPIRONE [Concomitant]
  8. ALENIA (BRAZIL) [Concomitant]
  9. BEROTEC [Concomitant]
  10. FORMOTEROL FUMARATE [Concomitant]
  11. BUDESONIDE [Concomitant]
  12. SUMATRIPTAN SUCCINATE [Concomitant]

REACTIONS (20)
  - Asthma [Not Recovered/Not Resolved]
  - Urinary tract infection [Recovering/Resolving]
  - White blood cell disorder [Recovering/Resolving]
  - Infarction [Recovered/Resolved]
  - Blood immunoglobulin E increased [Recovering/Resolving]
  - Pain [Recovered/Resolved]
  - Lung disorder [Recovering/Resolving]
  - Vomiting [Recovering/Resolving]
  - Fatigue [Not Recovered/Not Resolved]
  - Dyspnoea [Recovered/Resolved]
  - Fall [Unknown]
  - Pyrexia [Unknown]
  - Pneumonia [Unknown]
  - Chest pain [Not Recovered/Not Resolved]
  - Headache [Not Recovered/Not Resolved]
  - Hypersensitivity [Not Recovered/Not Resolved]
  - Weight increased [Recovered/Resolved]
  - Hypertension [Not Recovered/Not Resolved]
  - Malaise [Unknown]
  - Dyspnoea at rest [Not Recovered/Not Resolved]
